FAERS Safety Report 8435534-6 (Version None)
Quarter: 2012Q2

REPORT INFORMATION
  Report Type: 
  Country: None (occurrence: None)
  Receive Date: 20120614
  Receipt Date: 20120604
  Transmission Date: 20120825
  Serious: Yes (Hospitalization)
  Sender: FDA-Public Use
  Company Number: US-GENZYME-FABR-1002557

PATIENT
  Age: 48 Year
  Sex: Male
  Weight: 70 kg

DRUGS (3)
  1. FABRAZYME [Suspect]
     Indication: FABRY'S DISEASE
     Dosage: 1 MG/KG, Q2W
     Route: 042
     Dates: start: 20111201
  2. FABRAZYME [Suspect]
     Dosage: HALF DOSE
     Route: 042
  3. SOLU-MEDROL [Concomitant]
     Indication: PREMEDICATION
     Dosage: UNK
     Route: 042

REACTIONS (4)
  - SPLENIC INFARCTION [None]
  - NAUSEA [None]
  - ABDOMINAL PAIN [None]
  - VOMITING [None]
